FAERS Safety Report 12190534 (Version 1)
Quarter: 2016Q1

REPORT INFORMATION
  Report Type: Spontaneous
  Country: US (occurrence: None)
  Receive Date: 20160317
  Receipt Date: 20160317
  Transmission Date: 20160526
  Serious: Yes (Life-Threatening, Hospitalization, Other)
  Sender: FDA-Public Use
  Company Number: None

PATIENT
  Age: 54 Year
  Sex: Female
  Weight: 47.17 kg

DRUGS (1)
  1. ESCITALOPRAM 10 MG GENERIC/CVS [Suspect]
     Active Substance: ESCITALOPRAM OXALATE
     Indication: ANXIETY
     Dosage: 1 10 MG ONCE DAILY TAKEN BY MOUTH
     Route: 048
     Dates: start: 20160304, end: 20160316

REACTIONS (6)
  - Dyspnoea [None]
  - Feeling abnormal [None]
  - Blood pressure fluctuation [None]
  - Confusional state [None]
  - Hyperhidrosis [None]
  - Palpitations [None]

NARRATIVE: CASE EVENT DATE: 20160316
